FAERS Safety Report 5359041-2 (Version None)
Quarter: 2007Q2

REPORT INFORMATION
  Report Type: 
  Country: None (occurrence: None)
  Receive Date: 20070615
  Receipt Date: 20070601
  Transmission Date: 20071010
  Serious: Yes (Hospitalization)
  Sender: FDA-Public Use
  Company Number: US-GENENTECH-242928

PATIENT

DRUGS (3)
  1. BEVACIZUMAB [Suspect]
     Indication: ADENOCARCINOMA PANCREAS
     Dosage: 10 MG/KG, 2/MONTH
     Route: 042
     Dates: start: 20061101, end: 20061222
  2. CETUXIMAB [Suspect]
     Indication: ADENOCARCINOMA PANCREAS
     Dosage: 250 MG/M2, 4/MONTH
     Route: 042
     Dates: start: 20061101, end: 20061222
  3. GEMCITABINE [Suspect]
     Indication: ADENOCARCINOMA PANCREAS
     Dosage: 1000 MG/M2, 3/MONTH
     Route: 042
     Dates: start: 20061101, end: 20061222

REACTIONS (1)
  - PNEUMOTHORAX [None]
